FAERS Safety Report 5119536-3 (Version None)
Quarter: 2006Q3

REPORT INFORMATION
  Report Type: 
  Country: None (occurrence: None)
  Receive Date: 20060928
  Receipt Date: 20060912
  Transmission Date: 20061208
  Serious: Yes (Death)
  Sender: FDA-Public Use
  Company Number: 2005076992

PATIENT
  Age: 71 Year
  Sex: Male
  Weight: 92.0802 kg

DRUGS (3)
  1. CELEBREX [Suspect]
     Indication: ARTHRITIS
     Dosage: 2 IN 1 D
     Dates: start: 19990101, end: 20041001
  2. CELEBREX [Suspect]
     Indication: INFLAMMATION
     Dosage: 2 IN 1 D
     Dates: start: 19990101, end: 20041001
  3. CELEBREX [Suspect]
     Indication: PAIN IN EXTREMITY
     Dosage: 2 IN 1 D
     Dates: start: 19990101, end: 20041001

REACTIONS (1)
  - ACUTE MYOCARDIAL INFARCTION [None]
